FAERS Safety Report 23686369 (Version 1)
Quarter: 2024Q1

REPORT INFORMATION
  Report Type: Spontaneous
  Country: US (occurrence: US)
  Receive Date: 20240329
  Receipt Date: 20240329
  Transmission Date: 20240410
  Serious: No
  Sender: FDA-Public Use
  Company Number: US-TEVA-VS-3163681

PATIENT
  Age: 57 Year
  Sex: Male

DRUGS (1)
  1. LIDOCAINE 5% [Suspect]
     Active Substance: LIDOCAINE
     Indication: Arthralgia
     Route: 065
     Dates: start: 202402

REACTIONS (9)
  - Pruritus [Unknown]
  - Sensitive skin [Unknown]
  - Skin reaction [Unknown]
  - Erythema [Unknown]
  - Skin irritation [Unknown]
  - Dry skin [Unknown]
  - Skin reaction [Unknown]
  - Pain of skin [Unknown]
  - Skin burning sensation [Unknown]

NARRATIVE: CASE EVENT DATE: 20240201
